FAERS Safety Report 7751187-4 (Version None)
Quarter: 2011Q3

REPORT INFORMATION
  Report Type: 
  Country: None (occurrence: None)
  Receive Date: 20110914
  Receipt Date: 20080421
  Transmission Date: 20111222
  Serious: Yes (Death)
  Sender: FDA-Public Use
  Company Number: PHHY2008NL37298

PATIENT
  Sex: Female

DRUGS (2)
  1. SANDOSTATIN LAR [Suspect]
     Dosage: 30 MG, UNK
     Dates: start: 20080404, end: 20080404
  2. SANDOSTATIN LAR [Suspect]
     Dosage: 30 MG, ONCE PER 3 WEEKS
     Dates: start: 20061128

REACTIONS (1)
  - DEATH [None]
